FAERS Safety Report 18104544 (Version 1)
Quarter: 2020Q3

REPORT INFORMATION
  Report Type: Report from Study
  Country: US (occurrence: US)
  Receive Date: 20200803
  Receipt Date: 20200803
  Transmission Date: 20201103
  Serious: No
  Sender: FDA-Public Use
  Company Number: US-KYOWAKIRIN-2020BKK012456

PATIENT

DRUGS (2)
  1. CRYSVITA [Suspect]
     Active Substance: BUROSUMAB-TWZA
     Indication: HEREDITARY HYPOPHOSPHATAEMIC RICKETS
     Dosage: 80 MG, (3 INJECTIONS, STRENGTH 30 MG AND 20 MG COMBINED), EVERY 2 WEEKS
     Route: 058
     Dates: start: 20190612
  2. CRYSVITA [Suspect]
     Active Substance: BUROSUMAB-TWZA
     Indication: HEREDITARY HYPOPHOSPHATAEMIC RICKETS
     Dosage: 80 MG, (3 INJECTIONS, STRENGTH 30 MG AND 20 MG COMBINED), EVERY 2 WEEKS
     Route: 058
     Dates: start: 20190612

REACTIONS (1)
  - Injection site pruritus [Unknown]
